FAERS Safety Report 26203447 (Version 1)
Quarter: 2025Q4

REPORT INFORMATION
  Report Type: Spontaneous
  Country: US (occurrence: None)
  Receive Date: 20251223
  Receipt Date: 20251223
  Transmission Date: 20260117
  Serious: Yes (Disabling)
  Sender: FDA-CTU
  Company Number: None

PATIENT
  Age: 29 Year
  Sex: Female
  Weight: 47.25 kg

DRUGS (1)
  1. METRONIDAZOLE [Suspect]
     Active Substance: METRONIDAZOLE
     Dates: start: 20230522, end: 20230528

REACTIONS (4)
  - Anxiety [None]
  - Neuropathy peripheral [None]
  - Fibromyalgia [None]
  - Fatigue [None]

NARRATIVE: CASE EVENT DATE: 20230522
